FAERS Safety Report 20730099 (Version 1)
Quarter: 2022Q2

REPORT INFORMATION
  Report Type: Spontaneous
  Country: US (occurrence: None)
  Receive Date: 20220419
  Receipt Date: 20220419
  Transmission Date: 20220720
  Serious: Yes (Other)
  Sender: FDA-Public Use
  Company Number: None

PATIENT
  Age: 69 Year
  Sex: Male

DRUGS (2)
  1. ESBRIET [Suspect]
     Active Substance: PIRFENIDONE
     Indication: Idiopathic pulmonary fibrosis
     Dosage: FREQUENCY : 3 TIMES A DAY;?
     Route: 048
     Dates: start: 20211228, end: 20220309
  2. ESBRIET [Concomitant]
     Active Substance: PIRFENIDONE
     Dates: end: 20220309

REACTIONS (8)
  - Rash [None]
  - Rash erythematous [None]
  - Rash pruritic [None]
  - Back pain [None]
  - Hyperventilation [None]
  - Nausea [None]
  - Vomiting [None]
  - Drug ineffective [None]

NARRATIVE: CASE EVENT DATE: 20220308
